FAERS Safety Report 10055633 (Version 1)
Quarter: 2014Q2

REPORT INFORMATION
  Report Type: Spontaneous
  Country: US (occurrence: None)
  Receive Date: 20140402
  Receipt Date: 20140402
  Transmission Date: 20141212
  Serious: Yes (Hospitalization)
  Sender: FDA-Public Use
  Company Number: None

PATIENT
  Age: 48 Year
  Sex: Male
  Weight: 131.3 kg

DRUGS (1)
  1. WARFARIN [Suspect]
     Indication: ATRIAL FIBRILLATION
     Route: 048
     Dates: start: 20131121, end: 20140224

REACTIONS (7)
  - Calciphylaxis [None]
  - Skin ulcer [None]
  - Superinfection bacterial [None]
  - Purpura [None]
  - Blister [None]
  - Angiopathy [None]
  - Platelet disorder [None]
